FAERS Safety Report 8383114-3 (Version None)
Quarter: 2012Q2

REPORT INFORMATION
  Report Type: 
  Country: None (occurrence: None)
  Receive Date: 20120524
  Receipt Date: 20120517
  Transmission Date: 20120825
  Serious: Yes (Hospitalization)
  Sender: FDA-Public Use
  Company Number: JP-JNJFOC-20120409307

PATIENT
  Sex: Female
  Weight: 46 kg

DRUGS (17)
  1. TRAMADOL HYDROCHLORIDE AND ACETAMINOPHEN [Concomitant]
     Route: 048
     Dates: start: 20120113, end: 20120123
  2. CLARITHROMYCIN [Concomitant]
     Route: 048
  3. TRAMADOL HYDROCHLORIDE AND ACETAMINOPHEN [Concomitant]
     Route: 048
     Dates: start: 20120124, end: 20120203
  4. FORTEO [Concomitant]
     Route: 058
  5. ITRACONAZOLE [Concomitant]
     Route: 048
  6. CYTOTEC [Concomitant]
     Indication: PROPHYLAXIS
     Route: 048
  7. SIMPONI [Suspect]
     Indication: RHEUMATOID ARTHRITIS
     Route: 058
     Dates: start: 20120201, end: 20120221
  8. TRAMADOL HYDROCHLORIDE AND ACETAMINOPHEN [Concomitant]
     Indication: RHEUMATOID ARTHRITIS
     Route: 048
     Dates: start: 20111226, end: 20120112
  9. LIPITOR [Concomitant]
     Route: 048
  10. METHOTREXATE [Suspect]
     Indication: PRODUCT USED FOR UNKNOWN INDICATION
     Route: 048
     Dates: start: 20120206
  11. DOMPERIDONE [Concomitant]
     Indication: PROPHYLAXIS
     Route: 048
     Dates: start: 20120113, end: 20120203
  12. DIOVAN [Concomitant]
     Route: 048
  13. ACTEMRA [Suspect]
     Indication: PRODUCT USED FOR UNKNOWN INDICATION
     Route: 041
     Dates: end: 20111221
  14. URSO 250 [Concomitant]
     Indication: PROPHYLAXIS
  15. LANSOPRAZOLE [Concomitant]
     Indication: PROPHYLAXIS
     Route: 048
  16. DOMPERIDONE [Concomitant]
     Route: 048
     Dates: start: 20111226, end: 20120112
  17. FOLIAMIN [Concomitant]
     Indication: PROPHYLAXIS
     Route: 048

REACTIONS (1)
  - GASTRIC CANCER [None]
